FAERS Safety Report 6204796-8 (Version None)
Quarter: 2009Q2

REPORT INFORMATION
  Report Type: 
  Country: None (occurrence: None)
  Receive Date: 20090527
  Receipt Date: 20090508
  Transmission Date: 20091009
  Serious: Yes (Other)
  Sender: FDA-Public Use
  Company Number: PHHY2009JP20170

PATIENT
  Age: 87 Year
  Sex: Female

DRUGS (6)
  1. RESCULA [Suspect]
     Indication: GLAUCOMA
     Dosage: UNK
  2. PRORANON [Concomitant]
     Dosage: UNK
  3. NORVASC [Concomitant]
     Dosage: 2.5 MG/DAY
     Route: 048
  4. DIOVAN [Concomitant]
     Dosage: 80 MG/DAY
     Route: 048
  5. MAGNESIUM OXIDE [Concomitant]
     Dosage: 0.6 G/DAY
     Route: 048
  6. PRANLUKAST [Concomitant]
     Dosage: 900 MG/DAY
     Route: 048

REACTIONS (1)
  - ASTHMA [None]
